FAERS Safety Report 8917519 (Version 1)
Quarter: 2012Q4

REPORT INFORMATION
  Report Type: 
  Country: US (occurrence: US)
  Receive Date: 20121120
  Receipt Date: 20121120
  Transmission Date: 20130627
  Serious: No
  Sender: FDA-Public Use
  Company Number: US-VERTEX PHARMACEUTICAL INC.-2012-024706

PATIENT
  Sex: Male
  Weight: 65.3 kg

DRUGS (5)
  1. VX-950 (TELAPREVIR) [Suspect]
     Indication: HEPATITIS C
     Dosage: 750 mg, tid
     Route: 048
     Dates: start: 20120904
  2. RIBASPHERE [Concomitant]
     Indication: HEPATITIS C
     Dosage: 3 am / 2 pm
     Dates: start: 20120904
  3. RIBASPHERE [Concomitant]
     Dosage: 1 DF, bid
     Dates: start: 20121105
  4. PEGASYS [Concomitant]
     Indication: HEPATITIS C
     Dosage: 180 ?g, weekly
     Route: 058
     Dates: start: 20120904
  5. SUBOXONE [Concomitant]
     Dosage: UNK, qd

REACTIONS (1)
  - Anaemia [Unknown]
